FAERS Safety Report 5840565-6 (Version None)
Quarter: 2008Q3

REPORT INFORMATION
  Report Type: 
  Country: None (occurrence: None)
  Receive Date: 20080811
  Receipt Date: 20080804
  Transmission Date: 20090109
  Serious: Yes (Other)
  Sender: FDA-Public Use
  Company Number: AU-ASTRAZENECA-2008AP05545

PATIENT
  Age: 26956 Day
  Sex: Male
  Weight: 105 kg

DRUGS (2)
  1. CRESTOR [Suspect]
     Indication: LIPIDS INCREASED
     Route: 048
     Dates: start: 20080601, end: 20080601
  2. DILTIAZEM HCL [Interacting]
     Indication: TACHYCARDIA
     Dates: start: 20080601, end: 20080601

REACTIONS (3)
  - BLOOD CREATINE PHOSPHOKINASE INCREASED [None]
  - DRUG INTERACTION [None]
  - PAIN [None]
